FAERS Safety Report 10214391 (Version 1)
Quarter: 2014Q2

REPORT INFORMATION
  Report Type: Spontaneous
  Country: US (occurrence: None)
  Receive Date: 20140602
  Receipt Date: 20140602
  Transmission Date: 20141212
  Serious: Yes (Hospitalization)
  Sender: FDA-Public Use
  Company Number: None

PATIENT
  Age: 68 Year
  Sex: Male
  Weight: 96.4 kg

DRUGS (1)
  1. SUCCINYLCHOLINE [Suspect]
     Indication: SURGERY
     Route: 042
     Dates: start: 20140415, end: 20140415

REACTIONS (1)
  - Bradycardia [None]
